FAERS Safety Report 8598901-6 (Version None)
Quarter: 2012Q3

REPORT INFORMATION
  Report Type: 
  Country: None (occurrence: None)
  Receive Date: 20120816
  Receipt Date: 19940408
  Transmission Date: 20120928
  Serious: Yes (Hospitalization)
  Sender: FDA-Public Use
  Company Number: US-ROCHE-1100904

PATIENT
  Age: 51 Year
  Sex: Male

DRUGS (10)
  1. ASPIRIN [Concomitant]
  2. HEPARIN [Concomitant]
     Dosage: 10000 UNITS
  3. MORPHINE [Concomitant]
  4. HEPARIN [Concomitant]
  5. OXYGEN [Concomitant]
  6. ASPIRIN [Concomitant]
  7. MORPHINE [Concomitant]
  8. CLONIDINE [Concomitant]
  9. NITROGLYCERIN [Concomitant]
     Route: 060
  10. ACTIVASE [Suspect]
     Indication: ACUTE MYOCARDIAL INFARCTION

REACTIONS (2)
  - BLOOD CREATINE PHOSPHOKINASE INCREASED [None]
  - PAIN [None]
